FAERS Safety Report 13855305 (Version 1)
Quarter: 2017Q3

REPORT INFORMATION
  Report Type: Spontaneous
  Country: US (occurrence: US)
  Receive Date: 20170810
  Receipt Date: 20170810
  Transmission Date: 20171127
  Serious: No
  Sender: FDA-Public Use
  Company Number: US-VIFOR (INTERNATIONAL) INC.-VIT-2017-04546

PATIENT
  Sex: Female

DRUGS (11)
  1. ACTOS [Concomitant]
     Active Substance: PIOGLITAZONE HYDROCHLORIDE
  2. LEVEMIR [Concomitant]
     Active Substance: INSULIN DETEMIR
  3. CALCITRIOL. [Concomitant]
     Active Substance: CALCITRIOL
  4. ATORVASTATIN [Concomitant]
     Active Substance: ATORVASTATIN
  5. COLECALCIFEROL [Concomitant]
     Active Substance: CHOLECALCIFEROL
  6. ASPIRIN. [Concomitant]
     Active Substance: ASPIRIN
  7. VELTASSA [Suspect]
     Active Substance: PATIROMER
     Indication: HYPERKALAEMIA
     Dosage: 1 PACKET
     Route: 048
     Dates: start: 20170216
  8. ALBUTEROL. [Concomitant]
     Active Substance: ALBUTEROL
  9. DILTIAZEM. [Concomitant]
     Active Substance: DILTIAZEM
  10. TORASEMIDE [Concomitant]
     Active Substance: TORSEMIDE
  11. LISINOPRIL. [Concomitant]
     Active Substance: LISINOPRIL

REACTIONS (1)
  - Muscle spasms [Unknown]

NARRATIVE: CASE EVENT DATE: 2017
